FAERS Safety Report 19163650 (Version 1)
Quarter: 2021Q2

REPORT INFORMATION
  Report Type: Spontaneous
  Country: GB (occurrence: GB)
  Receive Date: 20210421
  Receipt Date: 20210421
  Transmission Date: 20210717
  Serious: Yes (Other)
  Sender: FDA-Public Use
  Company Number: GB-MACLEODS PHARMACEUTICALS US LTD-MAC2021030866

PATIENT

DRUGS (1)
  1. TRIAMCINOLONE ACETONIDE. [Suspect]
     Active Substance: TRIAMCINOLONE ACETONIDE
     Indication: DIABETIC RETINAL OEDEMA
     Dosage: 4 MILLIGRAM, INJECTION

REACTIONS (5)
  - Eye infection syphilitic [Unknown]
  - Retinal vasculitis [Recovering/Resolving]
  - Pupillary reflex impaired [Recovering/Resolving]
  - Post procedural complication [Unknown]
  - Uveitis [Recovering/Resolving]
